FAERS Safety Report 15160141 (Version 3)
Quarter: 2018Q4

REPORT INFORMATION
  Report Type: Report from Study
  Country: CO (occurrence: CO)
  Receive Date: 20180718
  Receipt Date: 20181030
  Transmission Date: 20190204
  Serious: Yes (Hospitalization, Other)
  Sender: FDA-Public Use
  Company Number: CO-SEATTLE GENETICS-2018SGN01631

PATIENT
  Age: 36 Year
  Sex: Male
  Weight: 52 kg

DRUGS (1)
  1. BRENTUXIMAB VEDOTIN-MPI [Suspect]
     Active Substance: BRENTUXIMAB VEDOTIN
     Indication: HODGKIN^S DISEASE
     Dosage: 100 MG, UNK
     Route: 042
     Dates: start: 20180131

REACTIONS (3)
  - Gastroenteritis [Recovered/Resolved]
  - Anal inflammation [Unknown]
  - Viral infection [Unknown]

NARRATIVE: CASE EVENT DATE: 20180625
